FAERS Safety Report 7138095-7 (Version None)
Quarter: 2010Q4

REPORT INFORMATION
  Report Type: 
  Country: None (occurrence: None)
  Receive Date: 20101206
  Receipt Date: 20101124
  Transmission Date: 20110411
  Serious: Yes (Hospitalization, Disabling, Other)
  Sender: FDA-Public Use
  Company Number: US-TEVA-258005USA

PATIENT
  Sex: Female
  Weight: 72.64 kg

DRUGS (12)
  1. QUININE SULFATE [Suspect]
     Indication: MUSCLE SPASMS
  2. IBUPROFEN [Concomitant]
     Indication: PAIN
  3. IBUPROFEN [Concomitant]
  4. NAPROXEN [Concomitant]
     Indication: PAIN
  5. AMOXICILLIN [Concomitant]
     Indication: INFECTION
  6. CLOBETASOL [Concomitant]
     Indication: DERMATITIS
  7. CLOBETASOL [Concomitant]
     Indication: PRURITUS
  8. METHOCARBAMOL [Concomitant]
     Indication: PAIN
  9. PREDNISONE [Concomitant]
     Indication: DERMATITIS
  10. PREDNISONE [Concomitant]
     Indication: HYPERSENSITIVITY
  11. PANTOPRAZOLE [Concomitant]
     Indication: DYSPEPSIA
  12. AZITHROMYCIN [Concomitant]
     Indication: INFECTION

REACTIONS (9)
  - ANAPHYLACTIC REACTION [None]
  - ANGIOPATHY [None]
  - BACK INJURY [None]
  - BLOOD DISORDER [None]
  - COAGULOPATHY [None]
  - DRUG HYPERSENSITIVITY [None]
  - RASH [None]
  - SKIN REACTION [None]
  - THROMBOCYTOPENIA [None]
